FAERS Safety Report 16947131 (Version 1)
Quarter: 2019Q4

REPORT INFORMATION
  Report Type: Spontaneous
  Country: US (occurrence: US)
  Receive Date: 20191022
  Receipt Date: 20191022
  Transmission Date: 20200122
  Serious: No
  Sender: FDA-Public Use
  Company Number: US-GLAXOSMITHKLINE-US2019AMR189658

PATIENT

DRUGS (1)
  1. TRELEGY ELLIPTA [Suspect]
     Active Substance: FLUTICASONE FUROATE\UMECLIDINIUM BROMIDE\VILANTEROL TRIFENATATE
     Indication: PRODUCT USED FOR UNKNOWN INDICATION
     Dosage: UNK, QD (FOR TWO WEEKS)
     Route: 065
     Dates: start: 201910

REACTIONS (8)
  - Influenza like illness [Unknown]
  - Dyspnoea [Unknown]
  - Asthenia [Unknown]
  - Fatigue [Unknown]
  - Drug ineffective [Unknown]
  - Condition aggravated [Unknown]
  - Pain [Unknown]
  - Nausea [Unknown]
